FAERS Safety Report 7378416-3 (Version None)
Quarter: 2011Q1

REPORT INFORMATION
  Report Type: 
  Country: None (occurrence: None)
  Receive Date: 20110328
  Receipt Date: 20110317
  Transmission Date: 20110831
  Serious: Yes (Other)
  Sender: FDA-Public Use
  Company Number: JP-PFIZER INC-2011065901

PATIENT
  Age: 69 Year
  Sex: Female

DRUGS (6)
  1. ITOROL [Suspect]
     Dosage: UNK
     Route: 048
     Dates: start: 20101105, end: 20110118
  2. PLAVIX [Suspect]
     Dosage: 75 MG
     Route: 048
     Dates: start: 20101021, end: 20101221
  3. TAKEPRON [Concomitant]
     Dosage: UNK
     Route: 048
     Dates: start: 20101013
  4. ATORVASTATIN CALCIUM [Suspect]
     Indication: HYPERCHOLESTEROLAEMIA
     Dosage: 10 MG
     Route: 048
     Dates: start: 20101018, end: 20110118
  5. MICARDIS [Concomitant]
     Dosage: UNK
     Route: 048
     Dates: start: 20101015
  6. ACETYLSALICYLIC ACID [Concomitant]
     Dosage: UNK
     Route: 048
     Dates: start: 20101013

REACTIONS (1)
  - PANCYTOPENIA [None]
